FAERS Safety Report 18376750 (Version 1)
Quarter: 2020Q4

REPORT INFORMATION
  Report Type: Spontaneous
  Country: US (occurrence: US)
  Receive Date: 20201013
  Receipt Date: 20201013
  Transmission Date: 20210114
  Serious: No
  Sender: FDA-Public Use
  Company Number: US-MYLANLABS-2020M1083414

PATIENT
  Sex: Female
  Weight: 73 kg

DRUGS (2)
  1. WIXELA INHUB [Suspect]
     Active Substance: FLUTICASONE PROPIONATE\SALMETEROL XINAFOATE
     Indication: CHRONIC OBSTRUCTIVE PULMONARY DISEASE
     Dosage: 500/50 MCG
     Route: 055
  2. RESCUE [Concomitant]
     Dosage: UNK

REACTIONS (3)
  - Off label use [Recovering/Resolving]
  - Expired product administered [Recovering/Resolving]
  - Device issue [Unknown]
